FAERS Safety Report 22591343 (Version 2)
Quarter: 2023Q2

REPORT INFORMATION
  Report Type: Spontaneous
  Country: VN (occurrence: VN)
  Receive Date: 20230612
  Receipt Date: 20230623
  Transmission Date: 20230721
  Serious: Yes (Hospitalization)
  Sender: FDA-Public Use
  Company Number: VN-GE HEALTHCARE-2023CSU004463

PATIENT
  Age: 50 Year
  Sex: Male
  Weight: 61 kg

DRUGS (3)
  1. OMNIPAQUE [Suspect]
     Active Substance: IOHEXOL
     Indication: Computerised tomogram
     Dosage: 50 ML, SINGLE
     Route: 042
     Dates: start: 20230530, end: 20230530
  2. OMNIPAQUE [Suspect]
     Active Substance: IOHEXOL
     Indication: Product used for unknown indication
  3. SODIUM CHLORIDE [Concomitant]
     Active Substance: SODIUM CHLORIDE
     Dosage: 50 ML, SINGLE
     Route: 042
     Dates: start: 20230530, end: 20230530

REACTIONS (3)
  - Chills [Recovering/Resolving]
  - Body temperature increased [Recovering/Resolving]
  - Blood pressure increased [Recovering/Resolving]

NARRATIVE: CASE EVENT DATE: 20230530
